FAERS Safety Report 6133000-4 (Version None)
Quarter: 2009Q1

REPORT INFORMATION
  Report Type: 
  Country: None (occurrence: None)
  Receive Date: 20090326
  Receipt Date: 20090316
  Transmission Date: 20090719
  Serious: Yes (Life-Threatening, Hospitalization, Disabling, Other)
  Sender: FDA-Public Use
  Company Number: US-WYE-H07382408

PATIENT
  Sex: Female

DRUGS (1)
  1. TIGECYCLINE [Suspect]
     Indication: PELVIC ABSCESS
     Dosage: TWICE DAILY
     Route: 042
     Dates: start: 20081128, end: 20081204

REACTIONS (11)
  - ATELECTASIS [None]
  - CHOLELITHIASIS [None]
  - DISSEMINATED INTRAVASCULAR COAGULATION [None]
  - HEPARIN-INDUCED THROMBOCYTOPENIA [None]
  - HEPATIC STEATOSIS [None]
  - LIVER ABSCESS [None]
  - NAUSEA [None]
  - PANCREATITIS ACUTE [None]
  - PLEURAL EFFUSION [None]
  - RENAL FAILURE ACUTE [None]
  - VOMITING [None]
